FAERS Safety Report 16015451 (Version 2)
Quarter: 2019Q1

REPORT INFORMATION
  Report Type: Other
  Country: AT (occurrence: AT)
  Receive Date: 20190228
  Receipt Date: 20190318
  Transmission Date: 20190418
  Serious: Yes (Life-Threatening, Hospitalization, Other)
  Sender: FDA-Public Use
  Company Number: AT-ASTELLAS-2019US007245

PATIENT
  Age: 61 Year
  Sex: Female

DRUGS (3)
  1. AMPHOTERICIN B, LIPOSOME [Suspect]
     Active Substance: AMPHOTERICIN B
     Indication: ASPERGILLUS INFECTION
     Route: 055
     Dates: start: 20181220, end: 20190114
  2. ECALTA [Suspect]
     Active Substance: ANIDULAFUNGIN
     Indication: ASPERGILLUS INFECTION
     Route: 065
     Dates: start: 20180113, end: 20190124
  3. VORICONAZOLE. [Suspect]
     Active Substance: VORICONAZOLE
     Indication: ASPERGILLUS INFECTION
     Route: 042
     Dates: start: 20181212, end: 20190109

REACTIONS (4)
  - Renal disorder [Recovered/Resolved]
  - Liver disorder [Recovered/Resolved]
  - Loss of consciousness [Recovered/Resolved]
  - Confusional state [Recovered/Resolved]

NARRATIVE: CASE EVENT DATE: 2019
